FAERS Safety Report 14707757 (Version 1)
Quarter: 2018Q2

REPORT INFORMATION
  Report Type: Spontaneous
  Country: FR (occurrence: FR)
  Receive Date: 20180403
  Receipt Date: 20180403
  Transmission Date: 20180711
  Serious: Yes (Hospitalization)
  Sender: FDA-Public Use
  Company Number: FR-MERCK KGAA-2044980

PATIENT
  Age: 68 Year
  Sex: Female
  Weight: 87 kg

DRUGS (1)
  1. NOVOTHYROX [Suspect]
     Active Substance: LEVOTHYROXINE SODIUM
     Indication: AUTOIMMUNE THYROIDITIS
     Route: 048
     Dates: start: 201704

REACTIONS (12)
  - Depression [Recovered/Resolved]
  - Nausea [Recovered/Resolved]
  - Nervousness [Not Recovered/Not Resolved]
  - Pain in extremity [Recovered/Resolved]
  - Weight increased [Recovered/Resolved]
  - Fatigue [Not Recovered/Not Resolved]
  - Chest pain [Recovered/Resolved]
  - Insomnia [Recovered/Resolved]
  - Disturbance in attention [Recovered/Resolved]
  - Somnolence [Recovered/Resolved]
  - Hot flush [Recovered/Resolved]
  - Balance disorder [Recovered/Resolved]

NARRATIVE: CASE EVENT DATE: 201704
